FAERS Safety Report 4668261-1 (Version None)
Quarter: 2005Q2

REPORT INFORMATION
  Report Type: 
  Country: None (occurrence: None)
  Receive Date: 20050523
  Receipt Date: 20040422
  Transmission Date: 20051028
  Serious: Yes (Other)
  Sender: FDA-Public Use
  Company Number: PHBS2004BE05796

PATIENT
  Age: 65 Year

DRUGS (7)
  1. AREDIA [Suspect]
     Indication: MULTIPLE MYELOMA
     Dates: start: 19951201, end: 20030701
  2. VINCRISTINE [Concomitant]
     Dates: start: 19960601
  3. MELPHALAN [Concomitant]
     Dates: start: 19960601
  4. CYCLOPHOSPHAMIDE [Concomitant]
     Dates: start: 19960601
  5. PREDNISONE [Concomitant]
     Dates: start: 19960601
  6. VINCRISTINE + ADRIAMYCIN + DEXAMETHASONE [Concomitant]
     Dates: start: 19960601
  7. ZOMETA [Suspect]
     Indication: MULTIPLE MYELOMA
     Route: 065
     Dates: start: 20030701, end: 20031101

REACTIONS (9)
  - FISTULA [None]
  - IMPAIRED HEALING [None]
  - JAW DISORDER [None]
  - MALIGNANT NEOPLASM PROGRESSION [None]
  - ORAL SOFT TISSUE DISORDER [None]
  - OSTEOMYELITIS [None]
  - OSTEONECROSIS [None]
  - PRIMARY SEQUESTRUM [None]
  - SECRETION DISCHARGE [None]
